FAERS Safety Report 9482164 (Version 1)
Quarter: 2013Q3

REPORT INFORMATION
  Report Type: Spontaneous
  Country: US (occurrence: US)
  Receive Date: 20130828
  Receipt Date: 20130828
  Transmission Date: 20140515
  Serious: Yes (Hospitalization, Other)
  Sender: FDA-Public Use
  Company Number: US-JNJFOC-20130810430

PATIENT
  Age: 5 Decade
  Sex: Male

DRUGS (3)
  1. INTELENCE [Suspect]
     Indication: HIV INFECTION
     Route: 065
     Dates: end: 2013
  2. PREZISTA [Suspect]
     Indication: HIV INFECTION
     Route: 065
     Dates: end: 2013
  3. VIREAD [Suspect]
     Indication: HIV INFECTION
     Route: 065

REACTIONS (6)
  - Rash [Recovered/Resolved]
  - Prostatic abscess [Unknown]
  - CD4 lymphocytes decreased [Unknown]
  - Acute hepatitis C [Unknown]
  - Hepatic failure [Recovered/Resolved]
  - Drug dose omission [Unknown]
